FAERS Safety Report 5379827-8 (Version None)
Quarter: 2007Q3

REPORT INFORMATION
  Report Type: 
  Country: None (occurrence: None)
  Receive Date: 20070703
  Receipt Date: 20070614
  Transmission Date: 20080115
  Serious: Yes (Hospitalization, Other)
  Sender: FDA-Public Use
  Company Number: 2007BI013187

PATIENT
  Sex: Female
  Weight: 3 kg

DRUGS (1)
  1. AVONEX [Suspect]
     Indication: MULTIPLE SCLEROSIS
     Dosage: 30 UG;QW;IM
     Route: 030
     Dates: start: 20050803

REACTIONS (6)
  - CAESAREAN SECTION [None]
  - FOETAL DISTRESS SYNDROME [None]
  - HIP DYSPLASIA [None]
  - MECONIUM IN AMNIOTIC FLUID [None]
  - PREGNANCY OF PARTNER [None]
  - TRANSMISSION OF DRUG VIA SEMEN [None]
